FAERS Safety Report 8006252-3 (Version None)
Quarter: 2011Q4

REPORT INFORMATION
  Report Type: 
  Country: None (occurrence: None)
  Receive Date: 20111226
  Receipt Date: 20111222
  Transmission Date: 20120403
  Serious: Yes (Death, Other)
  Sender: FDA-Public Use
  Company Number: PHHY2011JP72792

PATIENT
  Age: 66 Year
  Sex: Male

DRUGS (5)
  1. BEVACIZUMAB [Concomitant]
  2. LEUCOVORIN CALCIUM [Concomitant]
     Indication: COLORECTAL CANCER METASTATIC
  3. WARFARIN [Concomitant]
     Indication: ATRIAL FIBRILLATION
  4. OXALIPLATIN [Suspect]
     Indication: COLORECTAL CANCER METASTATIC
  5. FLUOROURACIL [Concomitant]
     Indication: COLORECTAL CANCER METASTATIC
     Dosage: UNK

REACTIONS (3)
  - LOBAR PNEUMONIA [None]
  - INTERSTITIAL LUNG DISEASE [None]
  - MULTI-ORGAN FAILURE [None]
